FAERS Safety Report 19145612 (Version 1)
Quarter: 2021Q2

REPORT INFORMATION
  Report Type: Spontaneous
  Country: US (occurrence: US)
  Receive Date: 20210416
  Receipt Date: 20210416
  Transmission Date: 20210717
  Serious: Yes (Other)
  Sender: FDA-Public Use
  Company Number: None

PATIENT
  Sex: Female

DRUGS (2)
  1. RESTORIL [Suspect]
     Active Substance: TEMAZEPAM
  2. AMBIEN [Suspect]
     Active Substance: ZOLPIDEM TARTRATE

REACTIONS (1)
  - Therapy non-responder [None]
